FAERS Safety Report 8424148-X (Version None)
Quarter: 2012Q2

REPORT INFORMATION
  Report Type: 
  Country: None (occurrence: None)
  Receive Date: 20120608
  Receipt Date: 20120221
  Transmission Date: 20120825
  Serious: No
  Sender: FDA-Public Use
  Company Number: US-ASTRAZENECA-2012SE11819

PATIENT
  Sex: Female

DRUGS (3)
  1. PULMICORT FLEXHALER [Suspect]
     Indication: NASOPHARYNGITIS
     Dosage: TAKE EVERY 12 HOURS
     Route: 055
  2. PULMICORT FLEXHALER [Suspect]
     Indication: BRONCHITIS
     Dosage: TAKE EVERY 12 HOURS
     Route: 055
  3. PULMICORT FLEXHALER [Suspect]
     Indication: LARYNGITIS
     Dosage: TAKE EVERY 12 HOURS
     Route: 055

REACTIONS (2)
  - OFF LABEL USE [None]
  - DYSPHONIA [None]
